FAERS Safety Report 17893839 (Version 2)
Quarter: 2020Q2

REPORT INFORMATION
  Report Type: Spontaneous
  Country: JP (occurrence: JP)
  Receive Date: 20200615
  Receipt Date: 20200626
  Transmission Date: 20200714
  Serious: Yes (Death, Other)
  Sender: FDA-Public Use
  Company Number: JP-ASTELLAS-2020JP008176

PATIENT
  Age: 8 Decade
  Sex: Male

DRUGS (2)
  1. XTANDI [Suspect]
     Active Substance: ENZALUTAMIDE
     Indication: PROSTATE CANCER METASTATIC
     Route: 048
     Dates: start: 20200605, end: 20200611
  2. GONAX [Suspect]
     Active Substance: DEGARELIX
     Indication: PROSTATE CANCER METASTATIC
     Route: 058
     Dates: start: 20200527, end: 20200611

REACTIONS (2)
  - Malignant neoplasm progression [Fatal]
  - Prescribed underdose [Unknown]

NARRATIVE: CASE EVENT DATE: 20200605
